FAERS Safety Report 6385306-1 (Version None)
Quarter: 2009Q4

REPORT INFORMATION
  Report Type: 
  Country: None (occurrence: None)
  Receive Date: 20091002
  Receipt Date: 20080811
  Transmission Date: 20100525
  Serious: No
  Sender: FDA-Public Use
  Company Number: US-ASTRAZENECA-2008UW16405

PATIENT
  Sex: Female

DRUGS (3)
  1. ARIMIDEX [Suspect]
     Route: 048
  2. CHEMOTHERAPY [Concomitant]
  3. RADIATION [Concomitant]

REACTIONS (3)
  - DRY EYE [None]
  - PERIODONTAL DISEASE [None]
  - TOOTH DISORDER [None]
